FAERS Safety Report 9714979 (Version 1)
Quarter: 2013Q4

REPORT INFORMATION
  Report Type: Spontaneous
  Country: US (occurrence: US)
  Receive Date: 20131126
  Receipt Date: 20131126
  Transmission Date: 20140711
  Serious: No
  Sender: FDA-Public Use
  Company Number: US-NOVEN-13US007535

PATIENT
  Age: 62 Year
  Sex: Female
  Weight: 69.39 kg

DRUGS (1)
  1. MINIVELLE [Suspect]
     Indication: HORMONE REPLACEMENT THERAPY
     Dosage: 0.05 MG, 2/WK
     Route: 062
     Dates: start: 20130624, end: 20130815

REACTIONS (4)
  - Application site pain [Recovered/Resolved]
  - Application site pruritus [Recovered/Resolved]
  - Application site erythema [Recovered/Resolved]
  - Off label use [Recovered/Resolved]
